FAERS Safety Report 4388569-7 (Version None)
Quarter: 2004Q2

REPORT INFORMATION
  Report Type: 
  Country: None (occurrence: None)
  Receive Date: 20040623
  Receipt Date: 20040608
  Transmission Date: 20050107
  Serious: Yes (Hospitalization)
  Sender: FDA-Public Use
  Company Number: 2003-01336

PATIENT
  Age: 71 Year
  Sex: Male

DRUGS (3)
  1. IMMUCYST (BCG - IT (CONNAUGHT)) [Suspect]
     Indication: BLADDER CANCER
     Dosage: 81.0 MG
     Route: 043
     Dates: start: 20020716
  2. OFLOCET [Concomitant]
  3. PLACEBO OFLOCET [Concomitant]

REACTIONS (3)
  - CYSTITIS [None]
  - DEPRESSION [None]
  - HAEMATURIA [None]
